FAERS Safety Report 7683546 (Version 4)
Quarter: 2018Q3

REPORT INFORMATION
  Report Type: Spontaneous
  Country: FR (occurrence: FR)
  Receive Date: 20101125
  Receipt Date: 20180912
  Transmission Date: 20181010
  Serious: Yes (Death, Disabling, Other)
  Sender: FDA-Public Use
  Company Number: FR-PFIZER INC-2010153176

PATIENT
  Age: 78 Year
  Sex: Male

DRUGS (2)
  1. TORISEL [Suspect]
     Active Substance: TEMSIROLIMUS
     Indication: MANTLE CELL LYMPHOMA
     Dosage: FIRST THREE CURES AT 175MG AND THE FOLLOWING AT 75 MG
     Route: 042
     Dates: start: 20091222, end: 20100702
  2. ALPHAGAN P [Concomitant]
     Active Substance: BRIMONIDINE TARTRATE
     Indication: OPEN ANGLE GLAUCOMA

REACTIONS (7)
  - Idiopathic interstitial pneumonia [Recovered/Resolved]
  - Rash [Unknown]
  - Nasal obstruction [Unknown]
  - Blindness [Not Recovered/Not Resolved]
  - Optic neuropathy [Not Recovered/Not Resolved]
  - Dyslipidaemia [Unknown]
  - Death [Fatal]

NARRATIVE: CASE EVENT DATE: 201006
